FAERS Safety Report 12468132 (Version 3)
Quarter: 2016Q3

REPORT INFORMATION
  Report Type: Spontaneous
  Country: US (occurrence: US)
  Receive Date: 20160615
  Receipt Date: 20160808
  Transmission Date: 20161109
  Serious: Yes (Death)
  Sender: FDA-Public Use
  Company Number: US-PFIZER INC-2016296790

PATIENT
  Age: 79 Year
  Sex: Female
  Weight: 54.43 kg

DRUGS (8)
  1. IBRANCE [Suspect]
     Active Substance: PALBOCICLIB
     Indication: BREAST CANCER STAGE IV
     Dosage: 125 MG, 1X/DAY
     Dates: start: 20160307, end: 20160321
  2. VITAMIN D3 [Concomitant]
     Active Substance: CHOLECALCIFEROL
     Dosage: 1 DF, DAILY (ONE TABLET EVERY DAY)
  3. FASLODEX [Concomitant]
     Active Substance: FULVESTRANT
     Dosage: 50 MG, CYCLIC (50 MG INJECTION EVERY 14 DAYS)
  4. ONDANSETRON [Concomitant]
     Active Substance: ONDANSETRON
     Indication: NAUSEA
     Dosage: UNK (TAKING UP UNTIL SHE PASSED AWAY)
     Dates: start: 20160307
  5. XALATAN [Concomitant]
     Active Substance: LATANOPROST
     Indication: GLAUCOMA
     Dosage: UNK, 1X/DAY (ONCE A DAY IN BOTH EYES)
     Route: 047
  6. ASPIRIN. [Concomitant]
     Active Substance: ASPIRIN
     Indication: CARDIAC DISORDER
     Dosage: 81 MG, DAILY
     Dates: start: 2006
  7. TYLENOL [Concomitant]
     Active Substance: ACETAMINOPHEN
     Indication: PAIN
     Dosage: ONCE OR TWICE A DAY, AS NEEDED (TAKEN PERIODICALLY)
  8. MORPHINE [Concomitant]
     Active Substance: MORPHINE
     Indication: LUNG DISORDER
     Dosage: TWO OR THREE TIMES A DAILY
     Dates: start: 20160425

REACTIONS (3)
  - Disease progression [Fatal]
  - Breast cancer stage IV [Fatal]
  - Malaise [Unknown]
